FAERS Safety Report 10407394 (Version 2)
Quarter: 2014Q4

REPORT INFORMATION
  Report Type: Spontaneous
  Country: US (occurrence: US)
  Receive Date: 20140825
  Receipt Date: 20141218
  Transmission Date: 20150528
  Serious: Yes (Death, Other)
  Sender: FDA-Public Use
  Company Number: US-GILEAD-2014-0112892

PATIENT

DRUGS (2)
  1. SOFOSBUVIR [Suspect]
     Active Substance: SOFOSBUVIR
     Indication: HEPATITIS C
     Route: 065
  2. SIMEPREVIR [Concomitant]
     Active Substance: SIMEPREVIR
     Indication: HEPATITIS C

REACTIONS (4)
  - Multi-organ failure [Fatal]
  - Blood creatine phosphokinase increased [Fatal]
  - Pain [Unknown]
  - Myalgia [Unknown]
